FAERS Safety Report 15035853 (Version 1)
Quarter: 2018Q2

REPORT INFORMATION
  Report Type: Spontaneous
  Country: US (occurrence: US)
  Receive Date: 20180620
  Receipt Date: 20180620
  Transmission Date: 20180711
  Serious: Yes (Other)
  Sender: FDA-Public Use
  Company Number: US-MYLANLABS-2018M1042722

PATIENT
  Age: 87 Year
  Sex: Female

DRUGS (2)
  1. PYRIDOXINE [Suspect]
     Active Substance: PYRIDOXINE
     Indication: VITAMIN SUPPLEMENTATION
  2. PYRIDOXINE [Suspect]
     Active Substance: PYRIDOXINE
     Indication: GASTROINTESTINAL DISORDER
     Route: 065

REACTIONS (3)
  - Peripheral sensorimotor neuropathy [Recovering/Resolving]
  - Balance disorder [Recovering/Resolving]
  - Hypervitaminosis [Recovering/Resolving]
